FAERS Safety Report 7446152-0 (Version None)
Quarter: 2011Q2

REPORT INFORMATION
  Report Type: 
  Country: None (occurrence: None)
  Receive Date: 20110429
  Receipt Date: 20110421
  Transmission Date: 20111010
  Serious: Yes (Hospitalization)
  Sender: FDA-Public Use
  Company Number: B0714704A

PATIENT
  Sex: Female

DRUGS (14)
  1. ZOPHREN [Suspect]
     Indication: PRODUCT USED FOR UNKNOWN INDICATION
     Route: 048
     Dates: end: 20110309
  2. ACTRAPID [Concomitant]
     Route: 065
  3. FLAGYL [Suspect]
     Indication: CLOSTRIDIUM DIFFICILE COLITIS
     Dosage: 500MG THREE TIMES PER DAY
     Route: 048
     Dates: start: 20110305, end: 20110311
  4. LOVENOX [Concomitant]
     Route: 065
  5. TRIFLUCAN [Suspect]
     Indication: PRODUCT USED FOR UNKNOWN INDICATION
     Dosage: 100MG PER DAY
     Route: 048
     Dates: end: 20110308
  6. PRIMPERAN TAB [Suspect]
     Indication: PRODUCT USED FOR UNKNOWN INDICATION
     Route: 048
     Dates: end: 20110311
  7. ACETAMINOPHEN [Suspect]
     Indication: PRODUCT USED FOR UNKNOWN INDICATION
     Route: 048
     Dates: end: 20110311
  8. ATENOLOL [Concomitant]
     Route: 065
  9. NPH INSULIN [Concomitant]
     Route: 065
  10. IMOVANE [Concomitant]
     Route: 065
  11. NEXIUM [Concomitant]
     Route: 065
  12. DURAGESIC-100 [Concomitant]
     Route: 065
  13. ALUMINUM HYDROXIDE AND MAGNESIUM TRISILICATE [Concomitant]
     Route: 065
  14. CORTANCYL [Concomitant]
     Route: 065

REACTIONS (1)
  - CHOLESTASIS [None]
